FAERS Safety Report 5875664-6 (Version None)
Quarter: 2008Q3

REPORT INFORMATION
  Report Type: 
  Country: None (occurrence: None)
  Receive Date: 20080904
  Receipt Date: 20080822
  Transmission Date: 20090109
  Serious: Yes (Hospitalization)
  Sender: FDA-Public Use
  Company Number: 2008AL009407

PATIENT
  Sex: Female

DRUGS (1)
  1. DIGOXIN [Suspect]
     Indication: ATRIAL FIBRILLATION

REACTIONS (5)
  - BALANCE DISORDER [None]
  - BRADYCARDIA [None]
  - DIPLOPIA [None]
  - DIZZINESS [None]
  - NAUSEA [None]
